FAERS Safety Report 23047562 (Version 3)
Quarter: 2024Q1

REPORT INFORMATION
  Report Type: Spontaneous
  Country: CA (occurrence: CA)
  Receive Date: 20231010
  Receipt Date: 20240318
  Transmission Date: 20240410
  Serious: Yes (Other)
  Sender: FDA-Public Use
  Company Number: CA-002147023-NVSC2021CA147566

PATIENT
  Age: 24 Year
  Sex: Male

DRUGS (17)
  1. TACROLIMUS [Suspect]
     Active Substance: TACROLIMUS
     Indication: Dermatitis
     Dosage: 1 DOSAGE FORM, BID
     Route: 048
     Dates: start: 201906, end: 202111
  2. XOLAIR [Suspect]
     Active Substance: OMALIZUMAB
     Dosage: 300 MG, Q4W(PRE-FILLED SYRINGE)
     Route: 058
     Dates: start: 20230929
  3. XOLAIR [Suspect]
     Active Substance: OMALIZUMAB
     Indication: Chronic spontaneous urticaria
     Dosage: 300 MG, Q4W(PRE-FILLED SYRINGE)
     Route: 058
     Dates: start: 20170531
  4. XOLAIR [Suspect]
     Active Substance: OMALIZUMAB
     Dosage: 300 MG, Q5W(PRE-FILLED SYRINGE)
     Route: 058
     Dates: start: 20230404
  5. XOLAIR [Suspect]
     Active Substance: OMALIZUMAB
     Dosage: 300 MG, Q5W(PRE-FILLED SYRINGE)
     Route: 058
  6. XOLAIR [Suspect]
     Active Substance: OMALIZUMAB
     Dosage: 450 MG, Q4W(PRE-FILLED SYRINGE)
     Route: 058
  7. XOLAIR [Suspect]
     Active Substance: OMALIZUMAB
     Dosage: 450 MG, Q4W(PRE-FILLED SYRINGE)
     Route: 058
  8. ALLEGRA [Concomitant]
     Active Substance: FEXOFENADINE HYDROCHLORIDE
     Indication: Chronic spontaneous urticaria
     Dosage: UNK, QD
     Route: 048
  9. ALLEGRA [Concomitant]
     Active Substance: FEXOFENADINE HYDROCHLORIDE
     Dosage: UNK, QD
     Route: 048
  10. BILASTINE [Concomitant]
     Active Substance: BILASTINE
     Indication: Chronic spontaneous urticaria
     Dosage: UNK, QD
     Route: 048
     Dates: start: 2017, end: 2017
  11. CYCLOSPORINE [Concomitant]
     Active Substance: CYCLOSPORINE
     Indication: Product used for unknown indication
     Dosage: UNK, TID
     Route: 065
  12. DOM MONTELUKAST [Concomitant]
     Indication: Chronic spontaneous urticaria
     Dosage: UNK, QD
     Route: 048
  13. MONTELUKAST [Concomitant]
     Active Substance: MONTELUKAST SODIUM
     Indication: Chronic spontaneous urticaria
     Dosage: UNK, QD
     Route: 048
  14. MONTELUKAST [Concomitant]
     Active Substance: MONTELUKAST SODIUM
     Dosage: UNK
     Route: 065
  15. OMALIZUMAB [Concomitant]
     Active Substance: OMALIZUMAB
     Indication: Chronic spontaneous urticaria
     Route: 065
  16. PREDNISONE [Concomitant]
     Active Substance: PREDNISONE
     Indication: Chronic spontaneous urticaria
     Dosage: UNK, BID
     Route: 048
  17. SINGULAIR [Concomitant]
     Active Substance: MONTELUKAST SODIUM
     Indication: Product used for unknown indication
     Dosage: UNK
     Route: 065

REACTIONS (13)
  - Angioedema [Not Recovered/Not Resolved]
  - Blood pressure systolic increased [Unknown]
  - Gingival hypertrophy [Unknown]
  - Vision blurred [Unknown]
  - Chronic spontaneous urticaria [Unknown]
  - Rash macular [Unknown]
  - Pruritus [Unknown]
  - Urticaria [Not Recovered/Not Resolved]
  - Rash [Unknown]
  - Therapy partial responder [Unknown]
  - Off label use [Unknown]
  - Product use in unapproved indication [Recovered/Resolved]
  - Incorrect dose administered [Unknown]

NARRATIVE: CASE EVENT DATE: 20190601
